FAERS Safety Report 14115293 (Version 2)
Quarter: 2017Q4

REPORT INFORMATION
  Report Type: Spontaneous
  Country: IT (occurrence: IT)
  Receive Date: 20171023
  Receipt Date: 20171115
  Transmission Date: 20180321
  Serious: Yes (Hospitalization, Other)
  Sender: FDA-Public Use
  Company Number: IT-MYLANLABS-2017M1067362

PATIENT
  Age: 29 Year
  Sex: Male

DRUGS (10)
  1. BUPRENORPHINE. [Suspect]
     Active Substance: BUPRENORPHINE
     Indication: DRUG USE DISORDER
     Route: 065
  2. VALPROIC ACID. [Suspect]
     Active Substance: VALPROIC ACID
     Dosage: 1800 MG/DAY
     Route: 065
  3. HALOPERIDOL DECANOATE. [Concomitant]
     Active Substance: HALOPERIDOL DECANOATE
     Indication: BIPOLAR DISORDER
     Route: 065
  4. LORAZEPAM. [Concomitant]
     Active Substance: LORAZEPAM
     Indication: AGGRESSION
     Dosage: 7.5 MG/DAY
     Route: 065
  5. FLURAZEPAM [Concomitant]
     Active Substance: FLURAZEPAM\FLURAZEPAM HYDROCHLORIDE
     Indication: AGGRESSION
     Dosage: 30 MG/DAY O.S.
     Route: 048
  6. VALPROIC ACID. [Suspect]
     Active Substance: VALPROIC ACID
     Indication: AGGRESSION
     Dosage: 1000 MG/DAY; THEN ADMINISTERED 1800 MG/DAY
     Route: 065
  7. CLOTIAPINE [Concomitant]
     Active Substance: CLOTHIAPINE
     Route: 048
  8. HALOPERIDOL. [Concomitant]
     Active Substance: HALOPERIDOL
     Indication: AGGRESSION
     Dosage: 6 MG/DAY
     Route: 065
  9. CHLORPROMAZINE. [Concomitant]
     Active Substance: CHLORPROMAZINE
     Indication: AGGRESSION
     Dosage: 100 MG/DAY
     Route: 065
  10. CLOTIAPINE [Concomitant]
     Active Substance: CLOTHIAPINE
     Indication: AGGRESSION
     Dosage: 120 MG/DAY; THEN CHANGED TO ORAL FORMULATION
     Route: 030

REACTIONS (2)
  - Drug abuse [Unknown]
  - Hyperammonaemia [Recovered/Resolved]
